FAERS Safety Report 5655661-6 (Version None)
Quarter: 2008Q1

REPORT INFORMATION
  Report Type: 
  Country: None (occurrence: None)
  Receive Date: 20080307
  Receipt Date: 20080229
  Transmission Date: 20080703
  Serious: No
  Sender: FDA-Public Use
  Company Number: US-BAXTER-2008BH000189

PATIENT
  Age: 59 Year
  Sex: Female
  Weight: 65 kg

DRUGS (25)
  1. HEPARIN SODIUM [Suspect]
     Indication: THROMBOSIS PROPHYLAXIS
     Route: 042
     Dates: start: 20071229, end: 20071229
  2. HEPARIN SODIUM [Suspect]
     Route: 042
     Dates: start: 20071229, end: 20071229
  3. HEPARIN SODIUM [Suspect]
     Route: 042
     Dates: start: 20071229, end: 20071229
  4. HEPARIN SODIUM [Suspect]
     Route: 042
     Dates: start: 20071229, end: 20071229
  5. HEPARIN SODIUM [Suspect]
     Route: 042
     Dates: start: 20071229, end: 20071229
  6. HEPARIN SODIUM [Suspect]
     Route: 042
     Dates: start: 20071229, end: 20071229
  7. HEPARIN SODIUM [Suspect]
     Route: 042
     Dates: start: 20071229, end: 20071229
  8. HEPARIN SODIUM [Suspect]
     Route: 042
     Dates: start: 20071229, end: 20071229
  9. HEPARIN SODIUM [Suspect]
     Route: 042
     Dates: start: 20071229, end: 20071229
  10. HEPARIN SODIUM [Suspect]
     Route: 042
     Dates: start: 20071229, end: 20071229
  11. HEPARIN SODIUM [Suspect]
     Route: 042
     Dates: start: 20071229, end: 20071229
  12. HEPARIN SODIUM [Suspect]
     Route: 042
     Dates: start: 20071229, end: 20071229
  13. HEPARIN SODIUM [Suspect]
     Route: 042
     Dates: start: 20071229, end: 20071229
  14. HEPARIN SODIUM [Suspect]
     Route: 042
     Dates: start: 20071229, end: 20071229
  15. HEPARIN SODIUM [Suspect]
     Route: 042
     Dates: start: 20071229, end: 20071229
  16. HEPARIN SODIUM [Suspect]
     Route: 042
     Dates: start: 20071229, end: 20071229
  17. SODIUM CHLORIDE INJ [Concomitant]
     Indication: DRUG USE FOR UNKNOWN INDICATION
     Dosage: DOSE UNIT:UNKNOWN
     Route: 010
     Dates: start: 20071201, end: 20071201
  18. HECTOROL [Concomitant]
     Indication: DRUG USE FOR UNKNOWN INDICATION
     Route: 042
  19. LISINOPRIL [Concomitant]
     Indication: DRUG USE FOR UNKNOWN INDICATION
     Route: 065
  20. NEUROTON [Concomitant]
     Indication: DRUG USE FOR UNKNOWN INDICATION
     Route: 065
  21. AMITRIPTYLINE HCL [Concomitant]
     Indication: DRUG USE FOR UNKNOWN INDICATION
     Route: 065
  22. ASPIRIN [Concomitant]
     Indication: DRUG USE FOR UNKNOWN INDICATION
     Route: 065
  23. TEMAZEPAM [Concomitant]
     Indication: DRUG USE FOR UNKNOWN INDICATION
     Route: 065
  24. CYCLOBENZAPRINE HCL [Concomitant]
     Indication: DRUG USE FOR UNKNOWN INDICATION
     Route: 065
  25. AMIODARONE HCL [Concomitant]
     Indication: DRUG USE FOR UNKNOWN INDICATION
     Route: 065

REACTIONS (6)
  - BLOOD PRESSURE DECREASED [None]
  - DRY MOUTH [None]
  - DYSPNOEA [None]
  - HEADACHE [None]
  - NAUSEA [None]
  - VOMITING [None]
